FAERS Safety Report 8013720-7 (Version None)
Quarter: 2011Q4

REPORT INFORMATION
  Report Type: 
  Country: None (occurrence: None)
  Receive Date: 20111229
  Receipt Date: 20111216
  Transmission Date: 20120403
  Serious: Yes (Life-Threatening, Hospitalization, Other)
  Sender: FDA-Public Use
  Company Number: US-ELI_LILLY_AND_COMPANY-US201112005824

PATIENT
  Age: 91 Year
  Sex: Male

DRUGS (10)
  1. CALCIUM CARBONATE [Concomitant]
  2. ERYTHROMYCIN [Concomitant]
  3. LEVOTHYROXINE SODIUM [Concomitant]
  4. ATENOLOL [Concomitant]
  5. FORTEO [Suspect]
     Indication: OSTEOPOROSIS
     Dosage: 20 UG, UNK
  6. VITAMIN D [Concomitant]
  7. SALT [Concomitant]
  8. POLYETHYLENE GLYCOL [Concomitant]
  9. TRAVATAN Z [Concomitant]
  10. MULTI-VITAMIN [Concomitant]

REACTIONS (7)
  - TRACHEOSTOMY [None]
  - EMPYEMA [None]
  - PLEURAL EFFUSION [None]
  - INFLAMMATION [None]
  - MECHANICAL VENTILATION [None]
  - TOOTH EXTRACTION [None]
  - MUSCULOSKELETAL STIFFNESS [None]
